FAERS Safety Report 24216719 (Version 1)
Quarter: 2024Q3

REPORT INFORMATION
  Report Type: Spontaneous
  Country: DE (occurrence: DE)
  Receive Date: 20240816
  Receipt Date: 20240816
  Transmission Date: 20241017
  Serious: Yes (Disabling, Other)
  Sender: TORRENT
  Company Number: None

PATIENT
  Age: 32 Year
  Sex: Female
  Weight: 64 kg

DRUGS (1)
  1. LEVOFLOXACIN [Suspect]
     Active Substance: LEVOFLOXACIN
     Indication: Colitis
     Dosage: 1-0-1
     Route: 048
     Dates: start: 20220414, end: 20220419

REACTIONS (83)
  - Arthralgia [Recovered/Resolved with Sequelae]
  - Skin discomfort [Not Recovered/Not Resolved]
  - Muscle twitching [Not Recovered/Not Resolved]
  - Myalgia [Not Recovered/Not Resolved]
  - Peripheral sensorimotor neuropathy [Not Recovered/Not Resolved]
  - Tremor [Recovered/Resolved with Sequelae]
  - Exercise tolerance decreased [Recovering/Resolving]
  - Muscular weakness [Not Recovered/Not Resolved]
  - Disturbance in attention [Recovered/Resolved with Sequelae]
  - Nerve injury [Not Recovered/Not Resolved]
  - High density lipoprotein increased [Unknown]
  - Spinal disorder [Recovered/Resolved with Sequelae]
  - Stool analysis abnormal [Unknown]
  - Malaise [Not Recovered/Not Resolved]
  - Photophobia [Recovered/Resolved with Sequelae]
  - Basophil count decreased [Unknown]
  - Somnolence [Recovered/Resolved with Sequelae]
  - Stool pH increased [Unknown]
  - Impaired quality of life [Not Recovered/Not Resolved]
  - Hyperhidrosis [Not Recovered/Not Resolved]
  - Nightmare [Recovered/Resolved with Sequelae]
  - Fatigue [Not Recovered/Not Resolved]
  - Faecal fat increased [Unknown]
  - Heart rate increased [Unknown]
  - Urinary sediment present [Unknown]
  - Abdominal distension [Not Recovered/Not Resolved]
  - Burning sensation [Not Recovered/Not Resolved]
  - Blood bilirubin decreased [Unknown]
  - Blood albumin increased [Unknown]
  - Diarrhoea [Not Recovered/Not Resolved]
  - Sensory overload [Recovered/Resolved with Sequelae]
  - Low density lipoprotein increased [Unknown]
  - Asthenia [Not Recovered/Not Resolved]
  - Nervousness [Recovered/Resolved with Sequelae]
  - Joint noise [Not Recovered/Not Resolved]
  - Gait disturbance [Recovered/Resolved with Sequelae]
  - Muscle spasms [Not Recovered/Not Resolved]
  - Blood alkaline phosphatase decreased [Unknown]
  - Restlessness [Recovered/Resolved with Sequelae]
  - Paraesthesia [Not Recovered/Not Resolved]
  - Sleep disorder [Recovered/Resolved with Sequelae]
  - Dysbiosis [Unknown]
  - Abdominal pain upper [Not Recovered/Not Resolved]
  - Headache [Recovered/Resolved with Sequelae]
  - Memory impairment [Recovered/Resolved with Sequelae]
  - Medication error [Unknown]
  - Eosinophil count decreased [Unknown]
  - Unemployment [Not Recovered/Not Resolved]
  - Electrocardiogram QT prolonged [Unknown]
  - Pain [Not Recovered/Not Resolved]
  - Prothrombin time shortened [Unknown]
  - Sensitive skin [Not Recovered/Not Resolved]
  - Rash pruritic [Not Recovered/Not Resolved]
  - Blood thyroid stimulating hormone increased [Unknown]
  - Tinnitus [Not Recovered/Not Resolved]
  - Mean platelet volume increased [Unknown]
  - Neuralgia [Not Recovered/Not Resolved]
  - Anxiety [Recovered/Resolved with Sequelae]
  - Muscle tightness [Not Recovered/Not Resolved]
  - Blood folate decreased [Unknown]
  - Back pain [Not Recovered/Not Resolved]
  - Tri-iodothyronine free abnormal [Unknown]
  - Dyspepsia [Not Recovered/Not Resolved]
  - Pelvic pain [Not Recovered/Not Resolved]
  - Panic attack [Recovered/Resolved with Sequelae]
  - Brain fog [Recovered/Resolved with Sequelae]
  - Abdominal distension [Not Recovered/Not Resolved]
  - Bone pain [Not Recovered/Not Resolved]
  - Abnormal dreams [Recovered/Resolved with Sequelae]
  - Nausea [Not Recovered/Not Resolved]
  - Peripheral sensory neuropathy [Not Recovered/Not Resolved]
  - Thyroxine free decreased [Unknown]
  - Psychotic disorder [Recovered/Resolved with Sequelae]
  - Mean cell haemoglobin concentration decreased [Unknown]
  - Anti-thyroid antibody decreased [Unknown]
  - Mental disorder [Recovered/Resolved with Sequelae]
  - Pain in extremity [Not Recovered/Not Resolved]
  - Speech disorder [Recovered/Resolved with Sequelae]
  - Renin increased [Unknown]
  - Tendon discomfort [Recovered/Resolved with Sequelae]
  - Insomnia [Recovered/Resolved with Sequelae]
  - Product communication issue [Unknown]
  - Toxicity to various agents [Recovered/Resolved with Sequelae]

NARRATIVE: CASE EVENT DATE: 20230919
